FAERS Safety Report 8117142-X (Version None)
Quarter: 2012Q1

REPORT INFORMATION
  Report Type: 
  Country: None (occurrence: None)
  Receive Date: 20120206
  Receipt Date: 20120131
  Transmission Date: 20120608
  Serious: Yes (Other)
  Sender: FDA-Public Use
  Company Number: PHHY2011US54293

PATIENT
  Sex: Female

DRUGS (8)
  1. MULTI-VITAMINS [Concomitant]
     Dosage: UNK UKN, UNK
  2. GILENYA [Suspect]
  3. LO/OVRAL [Concomitant]
     Dosage: UNK UKN, UNK
  4. GLUCOSAMINE W/CHONDROITIN [Concomitant]
     Dosage: UNK UKN, UNK
  5. DEXLANSOPRAZOLE [Concomitant]
     Dosage: UNK UKN, UNK
  6. GILENYA [Suspect]
     Indication: MULTIPLE SCLEROSIS
     Dosage: 0.5 MG, QD
     Route: 048
     Dates: start: 20100901
  7. ZANAFLEX [Concomitant]
     Dosage: UNK UKN, UNK
  8. VITAMIN D [Concomitant]
     Dosage: 100 IU, UNK

REACTIONS (8)
  - RASH [None]
  - PAIN IN JAW [None]
  - WRONG TECHNIQUE IN DRUG USAGE PROCESS [None]
  - PRODUCT QUALITY ISSUE [None]
  - INFLUENZA [None]
  - BASAL CELL CARCINOMA [None]
  - EAR PAIN [None]
  - MALAISE [None]
